FAERS Safety Report 7309195-3 (Version None)
Quarter: 2011Q1

REPORT INFORMATION
  Report Type: 
  Country: None (occurrence: None)
  Receive Date: 20110223
  Receipt Date: 20110214
  Transmission Date: 20110831
  Serious: Yes (Other)
  Sender: FDA-Public Use
  Company Number: GB-ASTRAZENECA-2011SE08522

PATIENT
  Age: 27 Year
  Sex: Male

DRUGS (3)
  1. QUETIAPINE [Suspect]
     Indication: PSYCHOTIC DISORDER
     Route: 048
     Dates: start: 20101213, end: 20110106
  2. BECONASE [Concomitant]
     Route: 045
     Dates: start: 20101209
  3. DEPAKOTE [Concomitant]
     Route: 048
     Dates: start: 20101220

REACTIONS (3)
  - PYREXIA [None]
  - MALAISE [None]
  - NEUTROPENIA [None]
